FAERS Safety Report 6814682-8 (Version None)
Quarter: 2010Q3

REPORT INFORMATION
  Report Type: 
  Country: None (occurrence: None)
  Receive Date: 20100702
  Receipt Date: 20100630
  Transmission Date: 20110219
  Serious: Yes (Other)
  Sender: FDA-Public Use
  Company Number: D0068135A

PATIENT
  Age: 16 Year
  Sex: Male

DRUGS (2)
  1. DUAC [Suspect]
     Route: 061
     Dates: start: 20080201
  2. RITALIN [Suspect]
     Route: 065

REACTIONS (2)
  - ALANINE AMINOTRANSFERASE INCREASED [None]
  - ASPARTATE AMINOTRANSFERASE INCREASED [None]
